FAERS Safety Report 8409039-2 (Version None)
Quarter: 2012Q2

REPORT INFORMATION
  Report Type: 
  Country: None (occurrence: None)
  Receive Date: 20120604
  Receipt Date: 20120223
  Transmission Date: 20120825
  Serious: No
  Sender: FDA-Public Use
  Company Number: US-NOVEN-12US004146

PATIENT
  Age: 7 Year
  Sex: Male

DRUGS (1)
  1. DAYTRANA [Suspect]
     Indication: DISTURBANCE IN ATTENTION
     Dosage: 1 PATCH DAILY WEEKDAYS
     Route: 062
     Dates: start: 20120101

REACTIONS (1)
  - SLEEP DISORDER [None]
